FAERS Safety Report 8116971-6 (Version None)
Quarter: 2012Q1

REPORT INFORMATION
  Report Type: 
  Country: None (occurrence: None)
  Receive Date: 20120131
  Receipt Date: 20120118
  Transmission Date: 20120608
  Serious: Yes (Other)
  Sender: FDA-Public Use
  Company Number: USA/UKI/12/0022784

PATIENT
  Sex: Male

DRUGS (1)
  1. DONEPEZIL HCL [Suspect]
     Indication: COGNITIVE DISORDER
     Dosage: 15 MG, 1 IN 1 D,   5 MG, 1 IN 1 D,

REACTIONS (1)
  - SOMATIC DELUSION [None]
